FAERS Safety Report 14021366 (Version 9)
Quarter: 2018Q1

REPORT INFORMATION
  Report Type: Report from Study
  Country: US (occurrence: US)
  Receive Date: 20170928
  Receipt Date: 20180126
  Transmission Date: 20180508
  Serious: Yes (Death, Hospitalization, Other)
  Sender: FDA-Public Use
  Company Number: US-GILEAD-2017-0284357

PATIENT
  Age: 72 Year
  Sex: Female

DRUGS (4)
  1. AMBRISENTAN [Suspect]
     Active Substance: AMBRISENTAN
     Indication: PRODUCT USED FOR UNKNOWN INDICATION
     Dosage: 10 MG, QD
     Route: 065
     Dates: start: 20131210
  2. OXYGEN. [Concomitant]
     Active Substance: OXYGEN
     Dosage: UNK
  3. REMODULIN [Concomitant]
     Active Substance: TREPROSTINIL
     Dosage: UNK
  4. ADCIRCA [Concomitant]
     Active Substance: TADALAFIL
     Dosage: UNK

REACTIONS (14)
  - Administration site pain [Unknown]
  - Death [Fatal]
  - Oxygen saturation decreased [Unknown]
  - Chronic obstructive pulmonary disease [Not Recovered/Not Resolved]
  - Headache [Recovering/Resolving]
  - Device malfunction [Unknown]
  - Mechanical ventilation [Unknown]
  - Bronchitis [Not Recovered/Not Resolved]
  - Dyspnoea [Not Recovered/Not Resolved]
  - Asthma [Not Recovered/Not Resolved]
  - Dyspnoea [Not Recovered/Not Resolved]
  - Hypertension [Unknown]
  - Malaise [Not Recovered/Not Resolved]
  - Hypoacusis [Not Recovered/Not Resolved]

NARRATIVE: CASE EVENT DATE: 20170926
